FAERS Safety Report 10166230 (Version 1)
Quarter: 2014Q2

REPORT INFORMATION
  Report Type: Spontaneous
  Country: US (occurrence: US)
  Receive Date: 20140512
  Receipt Date: 20140512
  Transmission Date: 20141212
  Serious: No
  Sender: FDA-Public Use
  Company Number: US-B.I. PHARMACEUTICALS,INC./RIDGEFIELD-2014-BI-19599BP

PATIENT
  Age: 63 Year
  Sex: Male
  Weight: 91 kg

DRUGS (6)
  1. PRADAXA [Suspect]
     Indication: ATRIAL FIBRILLATION
     Dosage: 300 MG
     Route: 048
     Dates: start: 20140429, end: 20140429
  2. CARVEDILOL [Concomitant]
     Indication: CARDIOMYOPATHY
     Dosage: 12.5 MG
     Route: 048
  3. CARVEDILOL [Concomitant]
     Dosage: 6.25 MG
     Route: 048
  4. AVAPRO [Concomitant]
     Indication: HYPERTENSION
     Dosage: 150 MG
     Route: 048
  5. DIGOXIN [Concomitant]
     Indication: ATRIAL FIBRILLATION
     Dosage: 0.25 MCG
     Route: 048
  6. EPLERENONE [Concomitant]
     Indication: FLUID RETENTION
     Dosage: 6 MG
     Route: 048

REACTIONS (2)
  - Anxiety [Recovered/Resolved]
  - Palpitations [Recovered/Resolved]
